FAERS Safety Report 11613249 (Version 1)
Quarter: 2015Q4

REPORT INFORMATION
  Report Type: Spontaneous
  Country: US (occurrence: US)
  Receive Date: 20151008
  Receipt Date: 20151008
  Transmission Date: 20160304
  Serious: No
  Sender: FDA-Public Use
  Company Number: US-JNJFOC-20150919923

PATIENT
  Sex: Female

DRUGS (2)
  1. GENERIC FENTANYL [Suspect]
     Active Substance: FENTANYL
     Indication: NERVE INJURY
     Route: 062
  2. GENERIC FENTANYL [Suspect]
     Active Substance: FENTANYL
     Indication: NERVE INJURY
     Route: 062

REACTIONS (3)
  - Product quality issue [Unknown]
  - Abdominal pain upper [Unknown]
  - Underdose [Unknown]
